FAERS Safety Report 16645985 (Version 2)
Quarter: 2019Q3

REPORT INFORMATION
  Report Type: Spontaneous
  Country: PL (occurrence: PL)
  Receive Date: 20190730
  Receipt Date: 20190910
  Transmission Date: 20191004
  Serious: Yes (Hospitalization, Other)
  Sender: FDA-Public Use
  Company Number: PL-SUN PHARMACEUTICAL INDUSTRIES LTD-2019RR-215650

PATIENT
  Age: 56 Year
  Sex: Male

DRUGS (18)
  1. BISOPROLOL [Suspect]
     Active Substance: BISOPROLOL
     Indication: PRODUCT USED FOR UNKNOWN INDICATION
     Dosage: 7.5 MILLIGRAM, UNK
     Route: 065
  2. RAMIPRIL. [Suspect]
     Active Substance: RAMIPRIL
     Indication: HYPERTENSION
     Dosage: 5 MILLIGRAM, UNK
     Route: 048
  3. ATORVASTATIN [Suspect]
     Active Substance: ATORVASTATIN
     Dosage: UNK ()
     Route: 065
  4. PANTOPRAZOLE [Suspect]
     Active Substance: PANTOPRAZOLE
     Indication: PRODUCT USED FOR UNKNOWN INDICATION
     Dosage: 20 MILLIGRAM, UNK
     Route: 065
  5. ATORVASTATIN [Suspect]
     Active Substance: ATORVASTATIN
     Indication: TYPE V HYPERLIPIDAEMIA
     Dosage: 20 MG, UNK
     Route: 065
  6. METFORMIN [Suspect]
     Active Substance: METFORMIN HYDROCHLORIDE
     Dosage: 3X 1000 MG
     Route: 065
  7. SACUBITRIL/VALSARTAN [Suspect]
     Active Substance: SACUBITRIL\VALSARTAN
     Indication: PRODUCT USED FOR UNKNOWN INDICATION
     Dosage: 97/103 MG/MG ()
     Route: 065
  8. IVABRADINE [Concomitant]
     Active Substance: IVABRADINE
     Indication: PRODUCT USED FOR UNKNOWN INDICATION
     Dosage: 5 MG, BID
     Route: 065
  9. DABIGATRAN [Suspect]
     Active Substance: DABIGATRAN
     Indication: PRODUCT USED FOR UNKNOWN INDICATION
     Dosage: 110 MILLIGRAM, BID
     Route: 065
  10. METFORMIN [Suspect]
     Active Substance: METFORMIN HYDROCHLORIDE
     Indication: TYPE 2 DIABETES MELLITUS
     Dosage: 850 MILLIGRAM, TID
     Route: 065
  11. ATORVASTATIN [Suspect]
     Active Substance: ATORVASTATIN
     Dosage: 80 MG, UNK
     Route: 065
  12. LERCANIDIPINE [Suspect]
     Active Substance: LERCANIDIPINE
     Indication: HYPERTENSION
     Dosage: 10 MILLIGRAM, UNK
     Route: 065
  13. AMIODARONE [Suspect]
     Active Substance: AMIODARONE
     Indication: PRODUCT USED FOR UNKNOWN INDICATION
     Dosage: 200 MILLIGRAM, UNK
     Route: 065
  14. EMPAGLIFLOZIN [Suspect]
     Active Substance: EMPAGLIFLOZIN
     Indication: TYPE 2 DIABETES MELLITUS
     Dosage: 10 DOSAGE FORM, 10 MG/DL
     Route: 065
  15. EPLERENONE. [Suspect]
     Active Substance: EPLERENONE
     Indication: PRODUCT USED FOR UNKNOWN INDICATION
     Dosage: 50 MILLIGRAM, UNK
     Route: 065
  16. TORASEMIDE [Suspect]
     Active Substance: TORSEMIDE
     Dosage: 20 MG, UNK
     Route: 065
  17. FUROSEMIDE. [Concomitant]
     Active Substance: FUROSEMIDE
     Indication: PRODUCT USED FOR UNKNOWN INDICATION
     Dosage: 40 MG, UNK
     Route: 065
  18. TORASEMIDE [Suspect]
     Active Substance: TORSEMIDE
     Indication: HYPERTENSION
     Dosage: 10 MILLIGRAM, UNK
     Route: 065

REACTIONS (6)
  - Condition aggravated [Recovering/Resolving]
  - Cardiac failure chronic [Recovering/Resolving]
  - Respiratory tract infection [Recovering/Resolving]
  - Diabetes mellitus inadequate control [Recovering/Resolving]
  - Drug ineffective [Unknown]
  - Concomitant disease aggravated [Recovering/Resolving]
